FAERS Safety Report 17294207 (Version 1)
Quarter: 2020Q1

REPORT INFORMATION
  Report Type: Spontaneous
  Country: US (occurrence: US)
  Receive Date: 20200121
  Receipt Date: 20200121
  Transmission Date: 20200409
  Serious: No
  Sender: FDA-Public Use
  Company Number: US-SA-2020SA012165

PATIENT
  Age: 23 Year
  Sex: Male

DRUGS (7)
  1. AMPHETAMINE [Concomitant]
     Active Substance: AMPHETAMINE
  2. DEXTROAMPHETAMINE [DEXAMFETAMINE] [Concomitant]
     Active Substance: DEXTROAMPHETAMINE
  3. TRIAMCINOLON [TRIAMCINOLONE] [Concomitant]
  4. OSELTAMIVIR [Concomitant]
     Active Substance: OSELTAMIVIR
  5. DUPIXENT [Suspect]
     Active Substance: DUPILUMAB
     Indication: DERMATITIS
     Dosage: 600 MG, 1X
     Route: 058
     Dates: start: 20191211
  6. PREDNISONE. [Concomitant]
     Active Substance: PREDNISONE
  7. PROMETHAZINE [Concomitant]
     Active Substance: PROMETHAZINE HYDROCHLORIDE

REACTIONS (2)
  - Dermatitis atopic [Not Recovered/Not Resolved]
  - Stress [Not Recovered/Not Resolved]
